FAERS Safety Report 4870220-0 (Version None)
Quarter: 2005Q4

REPORT INFORMATION
  Report Type: 
  Country: None (occurrence: None)
  Receive Date: 20051228
  Receipt Date: 20051216
  Transmission Date: 20060501
  Serious: Yes (Death)
  Sender: FDA-Public Use
  Company Number: US200512003458

PATIENT
  Age: 50 Year

DRUGS (5)
  1. HUMULIN N [Suspect]
  2. HUMULIN R [Suspect]
  3. HUMULIN LENTE (HUMAN INSULIN (RDNA ORIGIN) LENTE UNKNOWN FORMULATION) [Suspect]
  4. HUMULIN ULTRALENTE (HUMAN INSULIN (RDNA ORIGIN) ULTRALENTE UNKNOWN FOR [Suspect]
  5. HUMALOG [Suspect]

REACTIONS (6)
  - BLOOD GLUCOSE DECREASED [None]
  - BLOOD GLUCOSE INCREASED [None]
  - DRUG INEFFECTIVE [None]
  - INAPPROPRIATE SCHEDULE OF DRUG ADMINISTRATION [None]
  - RENAL FAILURE [None]
  - TREATMENT NONCOMPLIANCE [None]
